FAERS Safety Report 7523456-4 (Version None)
Quarter: 2011Q2

REPORT INFORMATION
  Report Type: 
  Country: None (occurrence: None)
  Receive Date: 20110603
  Receipt Date: 20110523
  Transmission Date: 20111010
  Serious: Yes (Hospitalization, Other)
  Sender: FDA-Public Use
  Company Number: PHHY2011US24797

PATIENT
  Sex: Female

DRUGS (1)
  1. EXJADE [Suspect]
     Dosage: 1500 MG, QD
     Route: 048
     Dates: start: 20110307, end: 20110329

REACTIONS (5)
  - VISUAL IMPAIRMENT [None]
  - GAIT DISTURBANCE [None]
  - VISION BLURRED [None]
  - SICKLE CELL ANAEMIA WITH CRISIS [None]
  - HYPOACUSIS [None]
